FAERS Safety Report 4881635-9 (Version None)
Quarter: 2006Q1

REPORT INFORMATION
  Report Type: 
  Country: None (occurrence: None)
  Receive Date: 20060116
  Receipt Date: 20051201
  Transmission Date: 20060701
  Serious: Yes (Other)
  Sender: FDA-Public Use
  Company Number: PHRM2005FR03207

PATIENT
  Age: 56 Year
  Sex: Female
  Weight: 50 kg

DRUGS (2)
  1. TRILEPTAL [Suspect]
     Indication: EPILEPSY
     Dosage: 600 MG/DAY
     Route: 048
     Dates: start: 20030708
  2. DEPAKENE [Concomitant]
     Indication: EPILEPSY
     Dosage: 500 MG/DAY
     Route: 048
     Dates: start: 20040607

REACTIONS (2)
  - CEREBELLAR ATAXIA [None]
  - NYSTAGMUS [None]
